FAERS Safety Report 10729183 (Version 1)
Quarter: 2015Q1

REPORT INFORMATION
  Report Type: Report from Study
  Country: US (occurrence: US)
  Receive Date: 20150122
  Receipt Date: 20150122
  Transmission Date: 20150721
  Serious: Yes (Other)
  Sender: FDA-Public Use
  Company Number: US-BAYER-2015-006389

PATIENT
  Age: 50 Year
  Sex: Female

DRUGS (2)
  1. BETASERON [Suspect]
     Active Substance: INTERFERON BETA-1B
     Indication: SECONDARY PROGRESSIVE MULTIPLE SCLEROSIS
     Dosage: UNK
     Dates: start: 20050524, end: 20080715
  2. BETASERON [Suspect]
     Active Substance: INTERFERON BETA-1B
     Indication: SECONDARY PROGRESSIVE MULTIPLE SCLEROSIS
     Dosage: 2 MIU, QOD
     Route: 058
     Dates: start: 20150113

REACTIONS (9)
  - Hypoaesthesia [Recovered/Resolved]
  - Mobility decreased [Recovered/Resolved]
  - Anxiety [Recovered/Resolved]
  - Affect lability [Recovered/Resolved]
  - Muscular weakness [Recovered/Resolved]
  - Crying [Recovered/Resolved]
  - Ear pain [Recovered/Resolved]
  - Oropharyngeal pain [Recovered/Resolved]
  - Muscle spasms [Recovered/Resolved]

NARRATIVE: CASE EVENT DATE: 20150113
